FAERS Safety Report 14746558 (Version 2)
Quarter: 2018Q2

REPORT INFORMATION
  Report Type: Report from Study
  Country: None (occurrence: US)
  Receive Date: 20180411
  Receipt Date: 20180412
  Transmission Date: 20180711
  Serious: Yes (Other)
  Sender: FDA-Public Use
  Company Number: US-ABBVIE-18K-163-2318230-00

PATIENT

DRUGS (1)
  1. DUOPA [Suspect]
     Active Substance: CARBIDOPA\LEVODOPA
     Indication: PARKINSON^S DISEASE
     Route: 050
     Dates: start: 20180103

REACTIONS (3)
  - Stoma site irritation [Not Recovered/Not Resolved]
  - Stoma site infection [Recovering/Resolving]
  - Stoma site haemorrhage [Recovering/Resolving]

NARRATIVE: CASE EVENT DATE: 2018
